FAERS Safety Report 10926423 (Version 1)
Quarter: 2015Q1

REPORT INFORMATION
  Report Type: Spontaneous
  Country: US (occurrence: None)
  Receive Date: 20150316
  Receipt Date: 20150316
  Transmission Date: 20150721
  Serious: Yes (Hospitalization)
  Sender: FDA-Public Use
  Company Number: None

PATIENT
  Age: 64 Year
  Sex: Female
  Weight: 88.91 kg

DRUGS (36)
  1. NEUCONTIN [Concomitant]
  2. NOVOLOG [Concomitant]
     Active Substance: INSULIN ASPART
  3. LANTUS SOLOSTAR [Concomitant]
     Active Substance: INSULIN GLARGINE
  4. MAGNESIUM [Concomitant]
     Active Substance: MAGNESIUM
  5. MIRALAX [Concomitant]
     Active Substance: POLYETHYLENE GLYCOL 3350
  6. LIDEX [Concomitant]
     Active Substance: FLUOCINONIDE
  7. NIZORAL [Concomitant]
     Active Substance: KETOCONAZOLE
  8. VALISONE [Concomitant]
     Active Substance: BETAMETHASONE VALERATE
  9. HYDROCORTISONE. [Concomitant]
     Active Substance: HYDROCORTISONE
  10. FOLIC ACID. [Concomitant]
     Active Substance: FOLIC ACID
  11. PAROXETINE [Suspect]
     Active Substance: PAROXETINE\PAROXETINE HYDROCHLORIDE
     Indication: MAJOR DEPRESSION
     Route: 048
     Dates: start: 20150225, end: 20150312
  12. TYLENOL [Concomitant]
     Active Substance: ACETAMINOPHEN
  13. UF SHORT INSULIN PEN [Concomitant]
  14. NITROSTAT [Concomitant]
     Active Substance: NITROGLYCERIN
  15. HYDRODIURIL [Concomitant]
     Active Substance: HYDROCHLOROTHIAZIDE
  16. IMDUR [Concomitant]
     Active Substance: ISOSORBIDE MONONITRATE
  17. CRESTOR [Concomitant]
     Active Substance: ROSUVASTATIN CALCIUM
  18. SENNA-S [Concomitant]
     Active Substance: DOCUSATE SODIUM\SENNOSIDES
  19. VITAMIN B [Concomitant]
     Active Substance: VITAMIN B
  20. PAROXETINE 20MG [Concomitant]
     Active Substance: PAROXETINE\PAROXETINE HYDROCHLORIDE
  21. VITAMIN C [Concomitant]
     Active Substance: ASCORBIC ACID
  22. ASPIRIN. [Concomitant]
     Active Substance: ASPIRIN
  23. CIPRODEX [Concomitant]
     Active Substance: CIPROFLOXACIN HYDROCHLORIDE\DEXAMETHASONE
  24. PLAVIX [Concomitant]
     Active Substance: CLOPIDOGREL BISULFATE
  25. DEXILANT [Concomitant]
     Active Substance: DEXLANSOPRAZOLE
  26. COZAAR [Concomitant]
     Active Substance: LOSARTAN POTASSIUM
  27. GLUCOPHAGE [Concomitant]
     Active Substance: METFORMIN HYDROCHLORIDE
  28. LOPRESSOR [Concomitant]
     Active Substance: METOPROLOL TARTRATE
  29. MULTIVITAMIN [Concomitant]
     Active Substance: VITAMINS
  30. DETROL LA [Concomitant]
     Active Substance: TOLTERODINE TARTRATE
  31. FISH OIL OMEGA-3 [Concomitant]
  32. LORATIDINE [Concomitant]
     Active Substance: LORATADINE
  33. ZETIA [Concomitant]
     Active Substance: EZETIMIBE
  34. KADIAN [Concomitant]
     Active Substance: MORPHINE SULFATE
  35. ROXICODONE [Concomitant]
     Active Substance: OXYCODONE HYDROCHLORIDE
  36. OMEGA 3FA [Concomitant]

REACTIONS (4)
  - Hallucination, visual [None]
  - Unevaluable event [None]
  - Depression [None]
  - Suicidal ideation [None]

NARRATIVE: CASE EVENT DATE: 20150312
